FAERS Safety Report 6050087-8 (Version None)
Quarter: 2009Q1

REPORT INFORMATION
  Report Type: 
  Country: None (occurrence: None)
  Receive Date: 20090119
  Receipt Date: 20090106
  Transmission Date: 20090719
  Serious: Yes (Death, Hospitalization)
  Sender: FDA-Public Use
  Company Number: IMP_04204_2009

PATIENT
  Age: 20 Month
  Sex: Female
  Weight: 13 kg

DRUGS (2)
  1. OXYCODONE HCL [Suspect]
     Indication: DRUG USE FOR UNKNOWN INDICATION
     Dosage: DF ORAL
     Route: 048
  2. HYDROCODONE BITARTRATE [Suspect]
     Indication: DRUG USE FOR UNKNOWN INDICATION
     Dosage: DF ORAL
     Route: 048

REACTIONS (12)
  - ACCIDENTAL DRUG INTAKE BY CHILD [None]
  - AREFLEXIA [None]
  - BRAIN HERNIATION [None]
  - BRONCHOPNEUMONIA [None]
  - CARDIO-RESPIRATORY ARREST [None]
  - CEREBRAL ISCHAEMIA [None]
  - COMA [None]
  - DRUG SCREEN POSITIVE [None]
  - DRUG TOXICITY [None]
  - MYOCARDIAL ISCHAEMIA [None]
  - POISONING [None]
  - UNRESPONSIVE TO STIMULI [None]
